FAERS Safety Report 9175715 (Version 3)
Quarter: 2012Q4

REPORT INFORMATION
  Report Type: 
  Country: US (occurrence: US)
  Receive Date: 20120913
  Receipt Date: 20121002
  Transmission Date: 20130627
  Serious: Yes (Other)
  Sender: FDA-Public Use
  Company Number: US-BIOMARINP-002986

PATIENT
  Age: 4 None
  Weight: 17.8 kg

DRUGS (1)
  1. KUVAN [Suspect]
     Indication: PHENYLKETONURIA
     Route: 048
     Dates: start: 20110723

REACTIONS (2)
  - Arrhythmia [Not Recovered/Not Resolved]
  - Heart rate increased [None]
